FAERS Safety Report 13820724 (Version 1)
Quarter: 2017Q3

REPORT INFORMATION
  Report Type: Spontaneous
  Country: FR (occurrence: FR)
  Receive Date: 20170801
  Receipt Date: 20170801
  Transmission Date: 20171127
  Serious: Yes (Congenital Anomaly)
  Sender: FDA-Public Use
  Company Number: FR-UCBSA-2017029469

PATIENT
  Age: 0 Year
  Sex: Male

DRUGS (2)
  1. VIMPAT [Suspect]
     Active Substance: LACOSAMIDE
     Indication: EPILEPSY
     Dosage: 200 MG, 2X/DAY (BID)
     Route: 064
     Dates: start: 201511, end: 20160731
  2. LAMICTAL [Suspect]
     Active Substance: LAMOTRIGINE
     Indication: EPILEPSY
     Dosage: 75 MG, 2X/DAY (BID)
     Route: 064
     Dates: start: 201511, end: 20160731

REACTIONS (4)
  - Hypospadias [Unknown]
  - Congenital pyelocaliectasis [Recovered/Resolved]
  - Foetal exposure during pregnancy [Unknown]
  - Foetal macrosomia [Unknown]

NARRATIVE: CASE EVENT DATE: 201511
